FAERS Safety Report 16175208 (Version 1)
Quarter: 2019Q2

REPORT INFORMATION
  Report Type: Spontaneous
  Country: CN (occurrence: CN)
  Receive Date: 20190409
  Receipt Date: 20190409
  Transmission Date: 20190711
  Serious: Yes (Hospitalization, Other)
  Sender: FDA-Public Use
  Company Number: CN-GILEAD-2019-0400739

PATIENT
  Age: 32 Year
  Sex: Female
  Weight: 50 kg

DRUGS (2)
  1. TECHNETIUM-99M ARCITUMOMAB [Concomitant]
     Active Substance: TECHNETIUM TC-99M ARCITUMOMAB
  2. ADEFOVIR DIPIVOXIL. [Suspect]
     Active Substance: ADEFOVIR DIPIVOXIL
     Indication: CHRONIC HEPATITIS B
     Dosage: 10 MG, QD
     Route: 065
     Dates: start: 2014

REACTIONS (7)
  - Hypophosphataemia [Unknown]
  - Fanconi syndrome [Recovering/Resolving]
  - Bone disorder [Unknown]
  - Multiple fractures [Unknown]
  - Bone pain [Recovering/Resolving]
  - Gait disturbance [Recovered/Resolved]
  - Arthralgia [Unknown]
